FAERS Safety Report 16399008 (Version 2)
Quarter: 2019Q2

REPORT INFORMATION
  Report Type: Spontaneous
  Country: DE (occurrence: DE)
  Receive Date: 20190606
  Receipt Date: 20190612
  Transmission Date: 20190711
  Serious: Yes (Hospitalization, Other)
  Sender: FDA-Public Use
  Company Number: DE-ASTRAZENECA-2019SE79658

PATIENT
  Age: 57 Year
  Sex: Male

DRUGS (3)
  1. OMEPRAZOL [Suspect]
     Active Substance: OMEPRAZOLE
     Indication: DYSPEPSIA
     Route: 048
     Dates: end: 2016
  2. PANTOPRAZOLE [Suspect]
     Active Substance: PANTOPRAZOLE
     Route: 048
  3. NEXIUM [Suspect]
     Active Substance: ESOMEPRAZOLE MAGNESIUM
     Dosage: FOR 10 YEARS
     Route: 048

REACTIONS (18)
  - Panic attack [Unknown]
  - Pancreatitis [Unknown]
  - Drug ineffective [Unknown]
  - Diarrhoea [Unknown]
  - Anxiety [Unknown]
  - Abdominal pain [Unknown]
  - Vision blurred [Unknown]
  - Hypertension [Unknown]
  - Depression [Unknown]
  - Hyperhidrosis [Unknown]
  - Taste disorder [Unknown]
  - Osteoporosis [Not Recovered/Not Resolved]
  - Tachycardia [Unknown]
  - Calcium deficiency [Unknown]
  - Blood cholesterol increased [Recovered/Resolved]
  - Joint injury [Not Recovered/Not Resolved]
  - Hallucination [Unknown]
  - Myalgia [Unknown]
